FAERS Safety Report 25971025 (Version 3)
Quarter: 2025Q4

REPORT INFORMATION
  Report Type: Spontaneous
  Country: US (occurrence: US)
  Receive Date: 20251028
  Receipt Date: 20251119
  Transmission Date: 20260117
  Serious: No
  Sender: BIOGEN
  Company Number: US-BIOGEN-2024BI01282232

PATIENT
  Sex: Female

DRUGS (19)
  1. VUMERITY [Suspect]
     Active Substance: DIROXIMEL FUMARATE
     Indication: Multiple sclerosis
     Dosage: DOSAGE TEXT:TAKE 1 CAPSULE (231MG) BY MOUTH TWICE DAILY FOR THE FIRST 7 DAYS,
     Dates: start: 2024
  2. VUMERITY [Suspect]
     Active Substance: DIROXIMEL FUMARATE
     Dosage: DOSAGE TEXT:TAKE 2 CAPSULES (462MG) TWICE DAILY THEREAFTER
  3. PHENERGAN [Concomitant]
     Active Substance: PROMETHAZINE HYDROCHLORIDE
  4. SOLIFENACIN SUCCINATE [Concomitant]
     Active Substance: SOLIFENACIN SUCCINATE
  5. ALBUTEROL [Concomitant]
     Active Substance: ALBUTEROL
  6. PERCOCET [Concomitant]
     Active Substance: ACETAMINOPHEN\OXYCODONE HYDROCHLORIDE
  7. ASPIRIN [Concomitant]
     Active Substance: ASPIRIN
  8. DICYCLOMINE HYDROCHLORIDE [Concomitant]
     Active Substance: DICYCLOMINE HYDROCHLORIDE
  9. AMLODIPINE BESYLATE [Concomitant]
     Active Substance: AMLODIPINE BESYLATE
  10. ATORVASTATIN CALCIUM [Concomitant]
     Active Substance: ATORVASTATIN CALCIUM
  11. VITAMIN D2 [Concomitant]
     Active Substance: ERGOCALCIFEROL
  12. IMODIUM A-D [Concomitant]
     Active Substance: LOPERAMIDE HYDROCHLORIDE
  13. LEVEMIR [Concomitant]
     Active Substance: INSULIN DETEMIR
  14. FAMOTIDINE [Concomitant]
     Active Substance: FAMOTIDINE
  15. FIORICET [Concomitant]
     Active Substance: ACETAMINOPHEN\BUTALBITAL\CAFFEINE
  16. TIZANIDINE HYDROCHLORIDE [Concomitant]
     Active Substance: TIZANIDINE HYDROCHLORIDE
  17. GLIMEPIRIDE [Concomitant]
     Active Substance: GLIMEPIRIDE
  18. VITAMIN B12 [Concomitant]
     Active Substance: CYANOCOBALAMIN
  19. BUSPIRONE HYDROCHLORIDE [Concomitant]
     Active Substance: BUSPIRONE HYDROCHLORIDE

REACTIONS (3)
  - Product dose omission issue [Unknown]
  - Blood pressure abnormal [Unknown]
  - Flushing [Recovered/Resolved]
